FAERS Safety Report 15867694 (Version 1)
Quarter: 2019Q1

REPORT INFORMATION
  Report Type: Spontaneous
  Country: US (occurrence: US)
  Receive Date: 20190103
  Receipt Date: 20190103
  Transmission Date: 20190417
  Serious: Yes (Hospitalization)
  Sender: FDA-Public Use
  Company Number: None

PATIENT
  Age: 81 Year
  Sex: Female

DRUGS (9)
  1. ENBREL [Suspect]
     Active Substance: ETANERCEPT
     Dosage: ON HOLD
     Route: 058
     Dates: start: 20161202
  2. PROTONIX [Concomitant]
     Active Substance: PANTOPRAZOLE SODIUM
  3. SIMVASTATIN. [Concomitant]
     Active Substance: SIMVASTATIN
  4. ATENOLOL. [Concomitant]
     Active Substance: ATENOLOL
  5. METHOTREXATE. [Concomitant]
     Active Substance: METHOTREXATE
  6. DIOVAN [Concomitant]
     Active Substance: VALSARTAN
  7. PROLIA [Concomitant]
     Active Substance: DENOSUMAB
  8. LASIX [Concomitant]
     Active Substance: FUROSEMIDE
  9. LORAZEPAM. [Concomitant]
     Active Substance: LORAZEPAM

REACTIONS (4)
  - Type 2 diabetes mellitus [None]
  - Symptom recurrence [None]
  - Bronchitis [None]
  - Therapy cessation [None]

NARRATIVE: CASE EVENT DATE: 20181130
